FAERS Safety Report 5475077-5 (Version None)
Quarter: 2007Q4

REPORT INFORMATION
  Report Type: 
  Country: None (occurrence: None)
  Receive Date: 20071002
  Receipt Date: 20070920
  Transmission Date: 20080405
  Serious: Yes (Hospitalization, Other)
  Sender: FDA-Public Use
  Company Number: GB-PFIZER INC-2007065825

PATIENT
  Sex: Male
  Weight: 85 kg

DRUGS (1)
  1. LYRICA [Suspect]
     Indication: NEURALGIA
     Route: 048
     Dates: start: 20070711, end: 20070720

REACTIONS (4)
  - ABDOMINAL PAIN [None]
  - HEPATITIS [None]
  - JAUNDICE [None]
  - NAUSEA [None]
